FAERS Safety Report 12318145 (Version 1)
Quarter: 2016Q2

REPORT INFORMATION
  Report Type: Spontaneous
  Country: US (occurrence: None)
  Receive Date: 20160428
  Receipt Date: 20160428
  Transmission Date: 20160815
  Serious: Yes (Hospitalization, Other)
  Sender: FDA-Public Use
  Company Number: None

PATIENT
  Sex: Male

DRUGS (1)
  1. FLUCONAZOLE. [Suspect]
     Active Substance: FLUCONAZOLE
     Indication: FUNGAL INFECTION
     Route: 048
     Dates: start: 20010611, end: 20010613

REACTIONS (14)
  - Nausea [None]
  - Asthma [None]
  - Malaise [None]
  - Abortion spontaneous [None]
  - Pneumonia [None]
  - Acute sinusitis [None]
  - Maternal exposure during pregnancy [None]
  - Gastric operation [None]
  - Febrile convulsion [None]
  - Abdominal pain [None]
  - Ear infection [None]
  - Congenital neurological disorder [None]
  - Maternal drugs affecting foetus [None]
  - Vanishing twin syndrome [None]

NARRATIVE: CASE EVENT DATE: 20010614
